FAERS Safety Report 9263523 (Version 2)
Quarter: 2013Q2

REPORT INFORMATION
  Report Type: Spontaneous
  Country: US (occurrence: None)
  Receive Date: 20130426
  Receipt Date: 20130502
  Transmission Date: 20140414
  Serious: Yes (Hospitalization)
  Sender: FDA-Public Use
  Company Number: FK201301281

PATIENT
  Age: 81 Year
  Sex: Female

DRUGS (2)
  1. PACLITAXEL [Suspect]
     Indication: LUNG NEOPLASM MALIGNANT
  2. CARBOPLATIN (CARBOPLATIN) [Concomitant]

REACTIONS (1)
  - Large intestine polyp [None]
